FAERS Safety Report 9612992 (Version 2)
Quarter: 2013Q4

REPORT INFORMATION
  Report Type: Spontaneous
  Country: US (occurrence: US)
  Receive Date: 20131010
  Receipt Date: 20131010
  Transmission Date: 20140711
  Serious: Yes (Other)
  Sender: FDA-Public Use
  Company Number: US-BAXTER-2013BAX037657

PATIENT
  Age: 21 Year
  Sex: Male

DRUGS (2)
  1. DIANEAL LOW CALCIUM [Suspect]
     Indication: PERITONEAL DIALYSIS
     Route: 033
     Dates: start: 20130508
  2. DIANEAL LOW CALCIUM [Suspect]
     Route: 033
     Dates: start: 20130508

REACTIONS (3)
  - Peritoneal cloudy effluent [Recovered/Resolved]
  - Abdominal pain [Recovered/Resolved]
  - Constipation [Unknown]
